FAERS Safety Report 8901563 (Version 1)
Quarter: 2012Q4

REPORT INFORMATION
  Report Type: Spontaneous
  Country: US (occurrence: None)
  Receive Date: 20121108
  Receipt Date: 20121108
  Transmission Date: 20130627
  Serious: Yes (Life-Threatening, Hospitalization, Other)
  Sender: FDA-Public Use
  Company Number: None

PATIENT
  Age: 68 Year
  Sex: Female
  Weight: 45.36 kg

DRUGS (1)
  1. METOPROLOL [Suspect]
     Indication: HYPERTENSION

REACTIONS (1)
  - Arrhythmia [None]
